FAERS Safety Report 10375376 (Version 2)
Quarter: 2014Q3

REPORT INFORMATION
  Report Type: Spontaneous
  Country: AU (occurrence: None)
  Receive Date: 20140806
  Receipt Date: 20140915
  Transmission Date: 20150326
  Serious: Yes (Other)
  Sender: FDA-Public Use
  Company Number: 2014-20097

PATIENT
  Age: 87 Year
  Sex: Female

DRUGS (3)
  1. XALATAN [Suspect]
     Active Substance: LATANOPROST
     Dosage: NIGHTLY BOTH EYES, OPTHALMIC
  2. WARFARIN [Concomitant]
     Active Substance: WARFARIN
  3. EYLEA [Suspect]
     Active Substance: AFLIBERCEPT
     Indication: AGE-RELATED MACULAR DEGENERATION
     Dosage: LOADING DOSE OD
     Route: 031
     Dates: start: 20140721

REACTIONS (4)
  - Blood pressure increased [None]
  - Skin ulcer [None]
  - Pain in extremity [None]
  - Foreign body sensation in eyes [None]

NARRATIVE: CASE EVENT DATE: 20140721
